FAERS Safety Report 12433612 (Version 1)
Quarter: 2016Q2

REPORT INFORMATION
  Report Type: Spontaneous
  Country: US (occurrence: US)
  Receive Date: 20160603
  Receipt Date: 20160603
  Transmission Date: 20160815
  Serious: Yes (Hospitalization, Other)
  Sender: FDA-Public Use
  Company Number: US-MDT-ADR-2016-00081

PATIENT
  Age: 32 Year
  Sex: Male

DRUGS (2)
  1. BACLFOEN [Suspect]
     Active Substance: BACLOFEN
     Route: 048
  2. LIORESAL [Suspect]
     Active Substance: BACLOFEN
     Dosage: 100 MCG/DAY
     Route: 037

REACTIONS (2)
  - Central nervous system infection [Unknown]
  - Infection [Unknown]

NARRATIVE: CASE EVENT DATE: 20160104
